FAERS Safety Report 5382092-9 (Version None)
Quarter: 2007Q3

REPORT INFORMATION
  Report Type: 
  Country: None (occurrence: None)
  Receive Date: 20070705
  Receipt Date: 20070621
  Transmission Date: 20080115
  Serious: Yes (Other)
  Sender: FDA-Public Use
  Company Number: DSU-2007-00320

PATIENT
  Age: 86 Year
  Sex: Female
  Weight: 69.4003 kg

DRUGS (11)
  1. BENICAR [Suspect]
     Indication: HYPERTENSION
     Dosage: 20 MG (20 MG, 1 TAB DAILY), PER ORAL
     Route: 048
     Dates: start: 20020101, end: 20051001
  2. BENICAR [Suspect]
     Indication: HYPERTENSION
     Dosage: 20 MG (20 MG, 1 TAB DAILY), PER ORAL
     Route: 048
     Dates: start: 20061101
  3. NAMENDA (MEMANTINE HYDROCHLORIDE) (1 MILLIGRAM, TABLET) (MEMANTINE HYD [Concomitant]
  4. COREG (CARVEDILOL) (3.125 MILLIGRAM, TABLET) (CARVEDILOL) [Concomitant]
  5. COZAAR (LOSARTAN POTASSIUM) (50 MILLIGRAM, TABLET) (LOSARTAN POTASSIUM [Concomitant]
  6. FUROSEMIDE (FUROSEMIDE) (FUROSEMIDE) [Concomitant]
  7. POTASSIUM CHLORIDE [Concomitant]
  8. LACTULOSE (LACTULOSE) (ORAL LIQUID) (LACTULOSE) [Concomitant]
  9. CALCIUM (CALCIUM) (TABLET) (CALCIUM) [Concomitant]
  10. MULTIVITAMIN [Concomitant]
  11. IRON SUPPLEMENT (IRON) (IRON) [Concomitant]

REACTIONS (4)
  - CARDIAC FAILURE CONGESTIVE [None]
  - FALL [None]
  - HIP FRACTURE [None]
  - URINARY TRACT INFECTION [None]
